FAERS Safety Report 6234192-9 (Version None)
Quarter: 2009Q2

REPORT INFORMATION
  Report Type: 
  Country: None (occurrence: None)
  Receive Date: 20090611
  Receipt Date: 20080618
  Transmission Date: 20091009
  Serious: Yes (Other)
  Sender: FDA-Public Use
  Company Number: WAES 0806USA03797

PATIENT
  Age: 40 Year
  Sex: Male

DRUGS (2)
  1. FOSAMAX PLUS D [Suspect]
     Indication: OSTEOPOROSIS
     Dosage: 70MG2800 IU/WKY/PO
     Route: 048
     Dates: start: 20080101, end: 20080301
  2. CELEBREX [Concomitant]

REACTIONS (1)
  - OSTEONECROSIS [None]
